FAERS Safety Report 4572585-6 (Version None)
Quarter: 2005Q1

REPORT INFORMATION
  Report Type: 
  Country: None (occurrence: None)
  Receive Date: 20050118
  Receipt Date: 20041015
  Transmission Date: 20050727
  Serious: Yes (Hospitalization, Other)
  Sender: FDA-Public Use
  Company Number: HQWYE831018OCT04

PATIENT
  Age: 67 Year
  Sex: Female
  Weight: 70.37 kg

DRUGS (1)
  1. PREMPRO [Suspect]
     Indication: HORMONE REPLACEMENT THERAPY
     Dosage: 0.625MG/2.5MG DAILY, ORAL
     Route: 048
     Dates: end: 20030201

REACTIONS (1)
  - UTERINE CANCER [None]
